FAERS Safety Report 12211763 (Version 1)
Quarter: 2016Q1

REPORT INFORMATION
  Report Type: Spontaneous
  Country: US (occurrence: US)
  Receive Date: 20160325
  Receipt Date: 20160325
  Transmission Date: 20160526
  Serious: Yes (Other)
  Sender: FDA-Public Use
  Company Number: US-ELI_LILLY_AND_COMPANY-US201603006696

PATIENT
  Age: 73 Year
  Sex: Female
  Weight: 96.15 kg

DRUGS (7)
  1. PREPARATION H                      /01565701/ [Suspect]
     Active Substance: PHENYLEPHRINE\SHARK LIVER OIL
     Dosage: UNK UNK, UNKNOWN
     Route: 065
     Dates: start: 20160303
  2. DIOVAN [Concomitant]
     Active Substance: VALSARTAN
     Indication: HYPERTENSION
     Dosage: UNK UNK, QD
  3. NORVASC [Concomitant]
     Active Substance: AMLODIPINE BESYLATE
     Indication: HYPERTENSION
     Dosage: 5 MG, QD
  4. HUMULIN R [Suspect]
     Active Substance: INSULIN HUMAN
     Indication: DIABETES MELLITUS
     Dosage: 20 U, EACH MORNING
     Route: 065
     Dates: start: 201602
  5. PREPARATION H                      /01565701/ [Suspect]
     Active Substance: PHENYLEPHRINE\SHARK LIVER OIL
     Indication: DISCOMFORT
     Dosage: UNK UNK, BID
     Route: 065
     Dates: start: 201602
  6. PREPARATION H                      /01565701/ [Suspect]
     Active Substance: PHENYLEPHRINE\SHARK LIVER OIL
     Indication: HAEMORRHOIDS
     Dosage: UNK UNK, BID
     Route: 065
     Dates: start: 2015
  7. MOBIC [Concomitant]
     Active Substance: MELOXICAM
     Indication: ARTHRITIS
     Dosage: 15 MG, QD
     Dates: start: 2014

REACTIONS (5)
  - Dizziness [Recovering/Resolving]
  - Speech disorder [Unknown]
  - Blood glucose increased [Unknown]
  - Blood glucose decreased [Unknown]
  - Dysstasia [Unknown]

NARRATIVE: CASE EVENT DATE: 20160304
